FAERS Safety Report 11346658 (Version 5)
Quarter: 2016Q2

REPORT INFORMATION
  Report Type: Report from Study
  Country: US (occurrence: US)
  Receive Date: 20150806
  Receipt Date: 20160401
  Transmission Date: 20160815
  Serious: Yes (Hospitalization)
  Sender: FDA-Public Use
  Company Number: US-PFIZER INC-2015251711

PATIENT
  Age: 73 Year
  Sex: Female
  Weight: 81.63 kg

DRUGS (13)
  1. LEVOTHYROXINE. [Concomitant]
     Active Substance: LEVOTHYROXINE
     Indication: HYPOTHYROIDISM
     Dosage: QD
     Route: 048
     Dates: start: 2007, end: 20150409
  2. LISINOPRIL. [Concomitant]
     Active Substance: LISINOPRIL
     Indication: HYPERTENSION
     Dosage: QD
     Route: 048
     Dates: start: 20140815
  3. NEUPOGEN [Concomitant]
     Active Substance: FILGRASTIM
     Indication: NEUTROPENIA
     Dosage: 300 MCG, MONTHLY
     Route: 030
  4. LEVOTHYROXINE. [Concomitant]
     Active Substance: LEVOTHYROXINE
     Dosage: QD
     Route: 048
     Dates: start: 20150410
  5. RANITIDINE. [Concomitant]
     Active Substance: RANITIDINE
     Indication: ULCER
     Dosage: QD
     Route: 048
     Dates: start: 20140320
  6. COLACE [Concomitant]
     Active Substance: DOCUSATE SODIUM
     Indication: CONSTIPATION
     Dosage: PRN
     Route: 048
     Dates: start: 20140408
  7. ALLEGRA [Concomitant]
     Active Substance: FEXOFENADINE HYDROCHLORIDE
     Indication: SINUSITIS
     Dosage: PRN
     Route: 048
     Dates: start: 20150203
  8. LIPITOR [Concomitant]
     Active Substance: ATORVASTATIN CALCIUM
     Indication: BLOOD CHOLESTEROL INCREASED
     Dosage: QD
     Route: 048
     Dates: start: 2007
  9. TRADJENTA [Concomitant]
     Active Substance: LINAGLIPTIN
     Indication: DIABETES MELLITUS
     Dosage: QD
     Route: 048
     Dates: start: 2012
  10. LETROZOLE. [Suspect]
     Active Substance: LETROZOLE
     Indication: BREAST CANCER
     Dosage: DAILY
     Route: 048
     Dates: start: 20140324
  11. FLONASE [Concomitant]
     Active Substance: FLUTICASONE PROPIONATE
     Indication: HYPERSENSITIVITY
     Dosage: QD
     Route: 055
     Dates: start: 2008
  12. PALBOCICLIB [Suspect]
     Active Substance: PALBOCICLIB
     Indication: BREAST CANCER
     Dosage: 3 WEEKS ON/1 WEEK OFF, EVERY 28 DAY CYCLE
     Route: 048
     Dates: start: 20140324, end: 20150724
  13. VASCOPAN [Concomitant]
     Indication: BLOOD TRIGLYCERIDES ABNORMAL
     Dosage: QD
     Route: 048
     Dates: start: 20150120

REACTIONS (3)
  - Urinary tract infection [Recovered/Resolved]
  - Pyelonephritis [Recovered/Resolved]
  - Sepsis [Recovered/Resolved]

NARRATIVE: CASE EVENT DATE: 20150723
